FAERS Safety Report 25393216 (Version 1)
Quarter: 2025Q2

REPORT INFORMATION
  Report Type: Spontaneous
  Country: CN (occurrence: CN)
  Receive Date: 20250604
  Receipt Date: 20250604
  Transmission Date: 20250716
  Serious: Yes (Other)
  Sender: BAXTER
  Company Number: None

PATIENT
  Age: 54 Year
  Sex: Female
  Weight: 69.5 kg

DRUGS (4)
  1. CYCLOPHOSPHAMIDE [Suspect]
     Active Substance: CYCLOPHOSPHAMIDE
     Indication: Breast cancer female
     Dosage: 1 G, QD, LYOPHILIZED POWDER
     Route: 041
     Dates: start: 20250411, end: 20250411
  2. SODIUM CHLORIDE [Suspect]
     Active Substance: SODIUM CHLORIDE
     Dosage: 250 ML, QD, 0.9% SODIUM CHLORIDE WITH DOCETAXEL
     Route: 041
     Dates: start: 20250411
  3. SODIUM CHLORIDE [Suspect]
     Active Substance: SODIUM CHLORIDE
     Dosage: 100ML, QD, 0.9% SODIUM CHLORIDE WITH CYCLOPHOSPHAMIDE
     Route: 041
     Dates: start: 20250411
  4. DOCETAXEL [Suspect]
     Active Substance: DOCETAXEL
     Indication: Breast cancer female
     Dosage: 130 MG, QD
     Route: 041
     Dates: start: 20250411, end: 20250411

REACTIONS (3)
  - Myelosuppression [Recovered/Resolved]
  - White blood cell count decreased [Recovered/Resolved]
  - Neutrophil count decreased [Recovered/Resolved]

NARRATIVE: CASE EVENT DATE: 20250503
